FAERS Safety Report 6915880-5 (Version None)
Quarter: 2010Q3

REPORT INFORMATION
  Report Type: 
  Country: None (occurrence: None)
  Receive Date: 20100804
  Receipt Date: 20100721
  Transmission Date: 20110219
  Serious: Yes (Death)
  Sender: FDA-Public Use
  Company Number: A-CH2010-37533

PATIENT
  Age: 49 Year
  Sex: Female
  Weight: 50 kg

DRUGS (3)
  1. ZAVESCA [Suspect]
     Indication: NIEMANN-PICK DISEASE
     Dosage: 200 MG, TID, ORAL; 100 MG, TID, ORAL
     Route: 048
     Dates: start: 20090925, end: 20091126
  2. ZAVESCA [Suspect]
     Indication: NIEMANN-PICK DISEASE
     Dosage: 200 MG, TID, ORAL; 100 MG, TID, ORAL
     Route: 048
     Dates: start: 20090127, end: 20100525
  3. LISINOPRIL [Concomitant]

REACTIONS (4)
  - DISEASE PROGRESSION [None]
  - DYSKINESIA [None]
  - NIEMANN-PICK DISEASE [None]
  - PNEUMONIA [None]
